FAERS Safety Report 4855658-X (Version None)
Quarter: 2005Q4

REPORT INFORMATION
  Report Type: 
  Country: None (occurrence: None)
  Receive Date: 20051216
  Receipt Date: 20050817
  Transmission Date: 20060501
  Serious: Yes (Other)
  Sender: FDA-Public Use
  Company Number: PHEH2005US09222

PATIENT
  Age: 18 Year
  Sex: Male
  Weight: 82.993 kg

DRUGS (1)
  1. CLOZARIL [Suspect]
     Indication: PSYCHOTIC DISORDER
     Dosage: 100MG BID, 25MG BID
     Route: 048
     Dates: start: 19980101

REACTIONS (5)
  - ABDOMINAL PAIN UPPER [None]
  - DYSPEPSIA [None]
  - GASTRIC ULCER [None]
  - GASTROINTESTINAL MOTILITY DISORDER [None]
  - IMPAIRED GASTRIC EMPTYING [None]
